FAERS Safety Report 4367312-1 (Version None)
Quarter: 2004Q2

REPORT INFORMATION
  Report Type: 
  Country: None (occurrence: None)
  Receive Date: 20040527
  Receipt Date: 20040514
  Transmission Date: 20050107
  Serious: Yes (Hospitalization)
  Sender: FDA-Public Use
  Company Number: FLUV00304000339

PATIENT
  Age: 61 Year
  Sex: Male
  Weight: 66 kg

DRUGS (9)
  1. FLUVOXAMINE MALEATE [Suspect]
     Indication: DEPRESSION
     Dosage: 100 MG DAILY PO
     Route: 048
     Dates: start: 20040123, end: 20040204
  2. ISOSORBIDE DINITRATE [Suspect]
     Indication: ANGINA PECTORIS
     Dosage: 40 MG DAILY PO
     Route: 048
     Dates: start: 20040123, end: 20040204
  3. TETRAMIDE (MIANSERIN HYDROCHLORIDE) [Suspect]
     Indication: DEPRESSION
     Dosage: 20 MG DAILY PO
     Route: 048
     Dates: start: 20040125, end: 20040204
  4. DOGMATYL (SULPIRIDE) [Suspect]
     Indication: DEPRESSION
     Dosage: 150 MG DAILY PO
     Route: 048
     Dates: start: 20040125, end: 20040204
  5. LOXONIN (LOXOPROFEN SODIUM) [Suspect]
     Indication: SOMNOLENCE
     Dosage: 60 MG DAILY PO
     Route: 048
     Dates: start: 20040112
  6. KAKKON-TO (PUERARIA ROOT EXTRACT) [Suspect]
     Indication: ILL-DEFINED DISORDER
     Dosage: 7.5 G DAILY PO
     Route: 048
     Dates: start: 20040112, end: 20040115
  7. PANTOSIN (PANTETHINE) [Suspect]
     Indication: ILL-DEFINED DISORDER
     Dosage: 3 G DAILY PO
     Route: 048
     Dates: start: 20040109, end: 20040112
  8. MAGNESIUM OXIDE (MAGNESIUM OXIDE) [Suspect]
     Indication: ILL-DEFINED DISORDER
     Dosage: 0.99 G DAILY PO
     Route: 048
     Dates: start: 20040109, end: 20040112
  9. CEFACLOR [Suspect]
     Indication: ILL-DEFINED DISORDER
     Dosage: 750 MG DAILY PO
     Route: 048
     Dates: start: 20040109, end: 20040112

REACTIONS (15)
  - ALANINE AMINOTRANSFERASE DECREASED [None]
  - ALANINE AMINOTRANSFERASE INCREASED [None]
  - ANOREXIA [None]
  - ASPARTATE AMINOTRANSFERASE DECREASED [None]
  - ASPARTATE AMINOTRANSFERASE INCREASED [None]
  - BLOOD CREATININE INCREASED [None]
  - BLOOD UREA DECREASED [None]
  - DEPRESSION [None]
  - GAMMA-GLUTAMYLTRANSFERASE DECREASED [None]
  - HAEMATOCRIT DECREASED [None]
  - HAEMOGLOBIN DECREASED [None]
  - HEPATIC FUNCTION ABNORMAL [None]
  - LONG QT SYNDROME [None]
  - PROTEIN TOTAL DECREASED [None]
  - RED BLOOD CELL COUNT DECREASED [None]
